FAERS Safety Report 20646640 (Version 2)
Quarter: 2022Q3

REPORT INFORMATION
  Report Type: Spontaneous
  Country: SK (occurrence: SK)
  Receive Date: 20220329
  Receipt Date: 20220701
  Transmission Date: 20221027
  Serious: Yes (Other)
  Sender: FDA-Public Use
  Company Number: SK-ABBVIE-22K-260-4312750-00

PATIENT
  Age: 45 Year
  Sex: Female

DRUGS (3)
  1. ADALIMUMAB [Suspect]
     Active Substance: ADALIMUMAB
     Indication: Oligoarthritis
     Dosage: UNK
     Route: 058
     Dates: start: 2017, end: 202112
  2. HYDROXYCHLOROQUINE [Concomitant]
     Active Substance: HYDROXYCHLOROQUINE
  3. SULFASALAZINE [Concomitant]
     Active Substance: SULFASALAZINE

REACTIONS (7)
  - Rosacea [Recovering/Resolving]
  - Lupus-like syndrome [Recovering/Resolving]
  - Arthropod bite [Recovered/Resolved]
  - Cyst [Not Recovered/Not Resolved]
  - Meniscus injury [Not Recovered/Not Resolved]
  - Synovial cyst [Not Recovered/Not Resolved]
  - Inflammation [Recovered/Resolved]

NARRATIVE: CASE EVENT DATE: 20191025
